FAERS Safety Report 9829138 (Version 2)
Quarter: 2014Q3

REPORT INFORMATION
  Report Type: Spontaneous
  Country: US (occurrence: US)
  Receive Date: 20140119
  Receipt Date: 20140731
  Transmission Date: 20150326
  Serious: Yes (Hospitalization, Other)
  Sender: FDA-Public Use
  Company Number: US-009507513-1401USA004128

PATIENT
  Sex: Female

DRUGS (1)
  1. NUVARING [Suspect]
     Active Substance: ETHINYL ESTRADIOL\ETONOGESTREL
     Dosage: UNK
     Route: 067
     Dates: start: 20100615, end: 20120615

REACTIONS (10)
  - Ovarian cyst [Unknown]
  - Protein total increased [Unknown]
  - Lung neoplasm malignant [Unknown]
  - Gastrooesophageal reflux disease [Unknown]
  - Lymphadenopathy [Unknown]
  - Tachycardia [Unknown]
  - Hypertension [Unknown]
  - Cardiac disorder [Unknown]
  - Pulmonary embolism [Unknown]
  - Back pain [Not Recovered/Not Resolved]

NARRATIVE: CASE EVENT DATE: 201204
